FAERS Safety Report 8831364 (Version 2)
Quarter: 2012Q4

REPORT INFORMATION
  Report Type: 
  Country: US (occurrence: US)
  Receive Date: 20121009
  Receipt Date: 20121015
  Transmission Date: 20130627
  Serious: No
  Sender: FDA-Public Use
  Company Number: US-009507513-1210USA002382

PATIENT
  Age: 55 Year
  Sex: Female

DRUGS (1)
  1. EMEND FOR INJECTION [Suspect]
     Indication: PROPHYLAXIS OF NAUSEA AND VOMITING
     Dosage: 150 mg, Once
     Route: 042

REACTIONS (4)
  - Skin discolouration [Recovering/Resolving]
  - Vein disorder [Recovering/Resolving]
  - Infusion site erythema [Recovering/Resolving]
  - Infusion site pain [Recovering/Resolving]
